FAERS Safety Report 19167286 (Version 1)
Quarter: 2021Q2

REPORT INFORMATION
  Report Type: Spontaneous
  Country: JP (occurrence: JP)
  Receive Date: 20210422
  Receipt Date: 20210422
  Transmission Date: 20210717
  Serious: Yes (Hospitalization, Other)
  Sender: FDA-Public Use
  Company Number: JP-MACLEODS PHARMACEUTICALS US LTD-MAC2021030861

PATIENT

DRUGS (5)
  1. BEVACIZUMAB. [Suspect]
     Active Substance: BEVACIZUMAB
     Indication: CHOROIDAL NEOVASCULARISATION
     Dosage: 1.25 MILLIGRAM (TWO SESSIONS)
     Dates: start: 200902
  2. TRIAMCINOLONE ACETONIDE. [Suspect]
     Active Substance: TRIAMCINOLONE ACETONIDE
     Indication: CHOROIDAL NEOVASCULARISATION
     Dosage: 20 MILLIGRAM POSTERIOR SUBTENON INJECTION
     Dates: start: 200902
  3. RANIBIZUMAB. [Concomitant]
     Active Substance: RANIBIZUMAB
     Indication: CHOROIDAL NEOVASCULARISATION
     Dosage: 0.5 MILLIGRAM
     Dates: start: 200904
  4. TRIAMCINOLONE ACETONIDE. [Suspect]
     Active Substance: TRIAMCINOLONE ACETONIDE
     Dosage: 20 MILLIGRAM POSTERIOR SUBTENON INJECTION
     Dates: start: 200905
  5. RANIBIZUMAB. [Concomitant]
     Active Substance: RANIBIZUMAB
     Dosage: 0.5 MILLIGRAM
     Dates: start: 200905

REACTIONS (2)
  - Drug ineffective [Unknown]
  - Cytomegalovirus chorioretinitis [Recovered/Resolved]
